FAERS Safety Report 24286926 (Version 1)
Quarter: 2024Q3

REPORT INFORMATION
  Report Type: Spontaneous
  Country: US (occurrence: US)
  Receive Date: 20240905
  Receipt Date: 20240905
  Transmission Date: 20241017
  Serious: No
  Sender: PFIZER
  Company Number: US-PFIZER INC-202400249825

PATIENT
  Age: 15 Year
  Sex: Female

DRUGS (3)
  1. HYDROCORTISONE [Suspect]
     Active Substance: HYDROCORTISONE\HYDROCORTISONE ACETATE
     Dosage: 40-100 BID (TWICE A DAY)
  2. RUXOLITINIB [Concomitant]
     Active Substance: RUXOLITINIB
     Dosage: 25 MG, 2X/DAY
  3. CYCLOSPORINE [Concomitant]
     Active Substance: CYCLOSPORINE
     Dosage: 100 MG, 2X/DAY

REACTIONS (4)
  - Condition aggravated [Unknown]
  - Pyrexia [Unknown]
  - Rash [Unknown]
  - Arthritis [Unknown]

NARRATIVE: CASE EVENT DATE: 20240801
